FAERS Safety Report 8403058-8 (Version None)
Quarter: 2012Q2

REPORT INFORMATION
  Report Type: 
  Country: None (occurrence: None)
  Receive Date: 20120601
  Receipt Date: 20120522
  Transmission Date: 20120825
  Serious: Yes (Other)
  Sender: FDA-Public Use
  Company Number: US-ELI_LILLY_AND_COMPANY-US201012000327

PATIENT
  Age: 73 Year
  Sex: Female

DRUGS (3)
  1. FORTEO [Suspect]
     Indication: OSTEOPOROSIS
     Dosage: 20 UG, DAILY (1/D)
     Dates: start: 20101008, end: 20101023
  2. FORTEO [Suspect]
     Dosage: 20 UG, DAILY (1/D)
     Dates: start: 20101107
  3. FORTEO [Suspect]
     Dosage: 20 UG, QD

REACTIONS (4)
  - NEOPLASM MALIGNANT [None]
  - INJECTION SITE HAEMATOMA [None]
  - INFLUENZA [None]
  - MALAISE [None]
